FAERS Safety Report 4888882-0 (Version None)
Quarter: 2006Q1

REPORT INFORMATION
  Report Type: 
  Country: None (occurrence: None)
  Receive Date: 20060123
  Receipt Date: 20051005
  Transmission Date: 20060701
  Serious: Yes (Other)
  Sender: FDA-Public Use
  Company Number: US-MERCK-0510USA03457

PATIENT
  Sex: Female
  Weight: 70 kg

DRUGS (11)
  1. VIOXX [Suspect]
     Indication: MYALGIA
     Route: 048
     Dates: start: 20020901, end: 20021001
  2. VIOXX [Suspect]
     Route: 048
     Dates: start: 20030101, end: 20030401
  3. VIOXX [Suspect]
     Indication: ARTHRALGIA
     Route: 048
     Dates: start: 20020901, end: 20021001
  4. VIOXX [Suspect]
     Route: 048
     Dates: start: 20030101, end: 20030401
  5. VITAMINS (UNSPECIFIED) [Concomitant]
     Route: 065
  6. CHONDROITIN SULFATE SODIUM AND GLUCOSAMINE HYDROCHLORIDE [Concomitant]
     Route: 065
  7. ALKA-SELTZER PLUS COLD AND FLU EFFERVESCENT [Concomitant]
     Route: 065
  8. ALEVE [Concomitant]
     Route: 065
  9. IBUPROFEN [Concomitant]
     Route: 065
  10. NAPROXEN [Concomitant]
     Route: 065
  11. PROTONIX [Concomitant]
     Route: 065

REACTIONS (7)
  - ASTHENIA [None]
  - CHEST PAIN [None]
  - DYSPNOEA [None]
  - EMOTIONAL DISORDER [None]
  - FATIGUE [None]
  - MENTAL DISORDER [None]
  - MYOCARDIAL INFARCTION [None]
